FAERS Safety Report 23378446 (Version 3)
Quarter: 2024Q1

REPORT INFORMATION
  Report Type: Report from Study
  Country: BE (occurrence: BE)
  Receive Date: 20240108
  Receipt Date: 20240312
  Transmission Date: 20240410
  Serious: Yes (Other)
  Sender: FDA-Public Use
  Company Number: BE-OTSUKA-2024_000112

PATIENT
  Age: 42 Year
  Sex: Female
  Weight: 93 kg

DRUGS (20)
  1. TOLVAPTAN [Suspect]
     Active Substance: TOLVAPTAN
     Indication: Congenital cystic kidney disease
     Dosage: 45 MG
     Route: 048
     Dates: start: 20180625
  2. TOLVAPTAN [Suspect]
     Active Substance: TOLVAPTAN
     Dosage: 15 MG
     Route: 048
     Dates: start: 20180625
  3. PERINDOPRIL ARGININE [Concomitant]
     Active Substance: PERINDOPRIL ARGININE
     Indication: Hypertension
     Dosage: 10 MG, QD
     Route: 048
     Dates: start: 2008
  4. METOPROLOL [Concomitant]
     Active Substance: METOPROLOL
     Indication: Product used for unknown indication
     Dosage: 95 MG, QD
     Route: 048
     Dates: start: 2016, end: 20180917
  5. MEDROL [Concomitant]
     Active Substance: METHYLPREDNISOLONE
     Indication: Product used for unknown indication
     Dosage: 40 MG, QD
     Route: 048
     Dates: start: 20180425, end: 20180619
  6. MEDROL [Concomitant]
     Active Substance: METHYLPREDNISOLONE
     Dosage: 32 MG, QD
     Route: 048
     Dates: start: 20180620, end: 20180720
  7. MEDROL [Concomitant]
     Active Substance: METHYLPREDNISOLONE
     Dosage: 28 MG, QD
     Route: 048
     Dates: start: 20180721, end: 20180820
  8. MEDROL [Concomitant]
     Active Substance: METHYLPREDNISOLONE
     Dosage: 24 MG, QD
     Route: 048
     Dates: start: 20180821, end: 20180924
  9. MEDROL [Concomitant]
     Active Substance: METHYLPREDNISOLONE
     Dosage: 20 MG, QD
     Route: 048
     Dates: start: 20180925, end: 20181024
  10. MEDROL [Concomitant]
     Active Substance: METHYLPREDNISOLONE
     Dosage: 18 MG, QD
     Route: 048
     Dates: start: 20181025, end: 20181130
  11. MEDROL [Concomitant]
     Active Substance: METHYLPREDNISOLONE
     Dosage: 16 MG, QD
     Route: 048
     Dates: start: 20181201, end: 20190115
  12. MEDROL [Concomitant]
     Active Substance: METHYLPREDNISOLONE
     Dosage: 14 MG, QD
     Route: 048
     Dates: start: 20190116, end: 20190304
  13. MEDROL [Concomitant]
     Active Substance: METHYLPREDNISOLONE
     Dosage: 12 MG, QD
     Route: 048
     Dates: start: 20190305, end: 20190505
  14. MEDROL [Concomitant]
     Active Substance: METHYLPREDNISOLONE
     Dosage: 8 MG, QD
     Route: 048
     Dates: start: 20190506, end: 20190930
  15. MEDROL [Concomitant]
     Active Substance: METHYLPREDNISOLONE
     Dosage: 6 MG, QD
     Route: 048
     Dates: start: 20191001
  16. IMURAN [Concomitant]
     Active Substance: AZATHIOPRINE
     Indication: Product used for unknown indication
     Dosage: 100 MG, QD
     Route: 048
     Dates: start: 201803
  17. PANTOPRAZOLE SODIUM [Concomitant]
     Active Substance: PANTOPRAZOLE SODIUM
     Indication: Product used for unknown indication
     Dosage: 40 MG, QD
     Route: 048
     Dates: start: 2018
  18. LEVOTHYROXINE [Concomitant]
     Active Substance: LEVOTHYROXINE\LEVOTHYROXINE SODIUM
     Indication: Product used for unknown indication
     Dosage: 25 ?G, QOD
     Route: 048
     Dates: start: 2015
  19. LEVOTHYROXINE [Concomitant]
     Active Substance: LEVOTHYROXINE\LEVOTHYROXINE SODIUM
     Dosage: 50 ?G, QOD
     Route: 048
     Dates: start: 2015
  20. SINTROM [Concomitant]
     Active Substance: ACENOCOUMAROL
     Indication: Product used for unknown indication
     Dosage: 1 MG, QD
     Route: 048
     Dates: start: 20180604, end: 20190212

REACTIONS (1)
  - Renal impairment [Not Recovered/Not Resolved]

NARRATIVE: CASE EVENT DATE: 20180712
